FAERS Safety Report 7591728-3 (Version None)
Quarter: 2011Q3

REPORT INFORMATION
  Report Type: 
  Country: None (occurrence: None)
  Receive Date: 20110701
  Receipt Date: 20110701
  Transmission Date: 20111222
  Serious: Yes (Other)
  Sender: FDA-Public Use
  Company Number: None

PATIENT
  Sex: Female
  Weight: 58.9676 kg

DRUGS (2)
  1. AZITHROMYCIN [Suspect]
     Indication: INFECTION
     Dosage: 2X250MG FIRST DAY PO
     Route: 048
     Dates: start: 20110621, end: 20110625
  2. AZITHROMYCIN [Suspect]
     Dosage: 1X250MG A DAY FOR 4 DAYS PO
     Route: 048

REACTIONS (9)
  - FAECES DISCOLOURED [None]
  - MALAISE [None]
  - NAUSEA [None]
  - ABDOMINAL PAIN [None]
  - DIARRHOEA [None]
  - EYE PAIN [None]
  - DIZZINESS [None]
  - HEADACHE [None]
  - VISUAL IMPAIRMENT [None]
